FAERS Safety Report 15623481 (Version 4)
Quarter: 2022Q1

REPORT INFORMATION
  Report Type: Spontaneous
  Country: ES (occurrence: ES)
  Receive Date: 20181115
  Receipt Date: 20220129
  Transmission Date: 20220423
  Serious: Yes (Death, Other)
  Sender: FDA-Public Use
  Company Number: ES-009507513-1809ESP012029

PATIENT
  Age: 60 Year
  Sex: Male
  Weight: 90 kg

DRUGS (3)
  1. TEMODAL [Suspect]
     Active Substance: TEMOZOLOMIDE
     Indication: Glioblastoma multiforme
     Dosage: 150 MG, DAY BY 5 DAYS EACH 28 DAY(SINCE 2 CYCLE)
     Route: 048
  2. TEMODAL [Suspect]
     Active Substance: TEMOZOLOMIDE
     Dosage: 75 MG, CYCLICAL, BY 5 DAYS EACH 28 DAY (1 CYCLE)
     Route: 048
     Dates: start: 201705, end: 201705
  3. TEMODAL [Suspect]
     Active Substance: TEMOZOLOMIDE
     Dosage: UNK
     Route: 048
     Dates: start: 201811

REACTIONS (6)
  - Glioblastoma multiforme [Fatal]
  - Anaphylactic reaction [Recovered/Resolved]
  - Urticaria [Unknown]
  - Tremor [Unknown]
  - Vomiting [Unknown]
  - Nausea [Unknown]

NARRATIVE: CASE EVENT DATE: 20170501
